FAERS Safety Report 13292749 (Version 1)
Quarter: 2017Q1

REPORT INFORMATION
  Report Type: Report from Study
  Country: CO (occurrence: CO)
  Receive Date: 20170303
  Receipt Date: 20170303
  Transmission Date: 20170428
  Serious: Yes (Death, Hospitalization)
  Sender: FDA-Public Use
  Company Number: PHHY2016CO140035

PATIENT
  Age: 46 Year
  Sex: Female
  Weight: 40 kg

DRUGS (1)
  1. AFINITOR [Suspect]
     Active Substance: EVEROLIMUS
     Indication: RENAL CELL CARCINOMA
     Dosage: 10 MG, QD
     Route: 048
     Dates: start: 20150514

REACTIONS (7)
  - Haemoglobin decreased [Unknown]
  - Blood glucose increased [Unknown]
  - Death [Fatal]
  - Decreased immune responsiveness [Unknown]
  - Oropharyngeal pain [Unknown]
  - Seizure [Unknown]
  - Cough [Not Recovered/Not Resolved]

NARRATIVE: CASE EVENT DATE: 20160815
